FAERS Safety Report 6951013-7 (Version None)
Quarter: 2010Q3

REPORT INFORMATION
  Report Type: 
  Country: None (occurrence: None)
  Receive Date: 20100828
  Receipt Date: 20100405
  Transmission Date: 20110219
  Serious: No
  Sender: FDA-Public Use
  Company Number: US-ABBOTT-10P-163-0631514-00

PATIENT
  Sex: Female
  Weight: 72.64 kg

DRUGS (19)
  1. NIASPAN [Suspect]
     Indication: BLOOD CHOLESTEROL INCREASED
     Dates: start: 20100201
  2. NIASPAN [Suspect]
     Dates: start: 20070101, end: 20100201
  3. LIPITOR [Concomitant]
     Indication: BLOOD CHOLESTEROL INCREASED
  4. LIPOFEN [Concomitant]
     Indication: BLOOD TRIGLYCERIDES INCREASED
  5. FISH OIL [Concomitant]
     Indication: PRODUCT USED FOR UNKNOWN INDICATION
  6. LOVAZA [Concomitant]
     Indication: PRODUCT USED FOR UNKNOWN INDICATION
  7. LOVAZA [Concomitant]
     Indication: PRODUCT USED FOR UNKNOWN INDICATION
  8. POTASSIUM [Concomitant]
     Indication: BLOOD POTASSIUM DECREASED
  9. POTASSIUM [Concomitant]
  10. COUMADIN [Concomitant]
     Indication: CARDIAC PACEMAKER INSERTION
  11. COUMADIN [Concomitant]
     Indication: ATRIAL FIBRILLATION
  12. COUMADIN [Concomitant]
     Indication: CORONARY ARTERIAL STENT INSERTION
  13. SPIROLACTON [Concomitant]
     Indication: HYPERTENSION
  14. BETAPACE [Concomitant]
     Indication: ATRIAL FIBRILLATION
  15. RAMIPRIL [Concomitant]
     Indication: HYPERTENSION
  16. ALPRAZOLAM [Concomitant]
     Indication: ANXIETY
  17. SYNTHROID [Concomitant]
     Indication: PRODUCT USED FOR UNKNOWN INDICATION
     Dosage: 50 MCG  AND 75 MCG ALTERNATING DAYS
  18. FOLIC ACID [Concomitant]
     Indication: PRODUCT USED FOR UNKNOWN INDICATION
  19. ASPIRIN [Concomitant]
     Indication: PRODUCT USED FOR UNKNOWN INDICATION

REACTIONS (3)
  - INSOMNIA [None]
  - RESTLESS LEGS SYNDROME [None]
  - RESTLESSNESS [None]
